FAERS Safety Report 6172252-1 (Version None)
Quarter: 2009Q2

REPORT INFORMATION
  Report Type: 
  Country: None (occurrence: None)
  Receive Date: 20090429
  Receipt Date: 20090423
  Transmission Date: 20091009
  Serious: No
  Sender: FDA-Public Use
  Company Number: US-JNJFOC-20090406344

PATIENT
  Sex: Male
  Weight: 81.65 kg

DRUGS (1)
  1. FENTANYL TRANSDERMAL SYSTEM [Suspect]
     Indication: ROAD TRAFFIC ACCIDENT
     Dosage: 100 MCG - 2 EVERY 72 HOURS
     Route: 062

REACTIONS (2)
  - DRUG SCREEN NEGATIVE [None]
  - WRONG TECHNIQUE IN DRUG USAGE PROCESS [None]
